FAERS Safety Report 14988550 (Version 2)
Quarter: 2018Q2

REPORT INFORMATION
  Report Type: Spontaneous
  Country: CA (occurrence: CA)
  Receive Date: 20180608
  Receipt Date: 20180619
  Transmission Date: 20180711
  Serious: Yes (Other)
  Sender: FDA-Public Use
  Company Number: CA-PFIZER INC-2018230899

PATIENT
  Age: 77 Year
  Sex: Male

DRUGS (1)
  1. METHOTREXATE SODIUM. [Suspect]
     Active Substance: METHOTREXATE SODIUM

REACTIONS (6)
  - Herpes zoster [Unknown]
  - Drug intolerance [Unknown]
  - Gout [Unknown]
  - Drug ineffective [Unknown]
  - Vertigo [Unknown]
  - Hernia [Unknown]

NARRATIVE: CASE EVENT DATE: 2017
